FAERS Safety Report 16384156 (Version 2)
Quarter: 2020Q2

REPORT INFORMATION
  Report Type: Spontaneous
  Country: US (occurrence: US)
  Receive Date: 20190603
  Receipt Date: 20200521
  Transmission Date: 20200713
  Serious: Yes (Hospitalization, Disabling)
  Sender: FDA-Public Use
  Company Number: US-JNJFOC-20190541989

PATIENT
  Age: 44 Year
  Sex: Male

DRUGS (1)
  1. INVOKANA [Suspect]
     Active Substance: CANAGLIFLOZIN
     Indication: TYPE 2 DIABETES MELLITUS
     Route: 048
     Dates: start: 201412

REACTIONS (5)
  - Diabetic foot infection [Unknown]
  - Osteomyelitis [Unknown]
  - Toe amputation [Unknown]
  - Cellulitis [Unknown]
  - Leg amputation [Unknown]

NARRATIVE: CASE EVENT DATE: 2015
